FAERS Safety Report 20459647 (Version 2)
Quarter: 2022Q1

REPORT INFORMATION
  Report Type: Spontaneous
  Country: US (occurrence: US)
  Receive Date: 20220211
  Receipt Date: 20220221
  Transmission Date: 20220423
  Serious: Yes (Other)
  Sender: FDA-Public Use
  Company Number: US-CELLTRION INC.-2022US001331

PATIENT

DRUGS (1)
  1. TRUXIMA [Suspect]
     Active Substance: RITUXIMAB-ABBS
     Indication: Leukaemia
     Dosage: 800MG DAY 1, 8, 15, 22, Q 28 DAYS
     Route: 042
     Dates: start: 20220107

REACTIONS (2)
  - Leukaemia [Unknown]
  - Off label use [Unknown]
